FAERS Safety Report 23999247 (Version 1)
Quarter: 2024Q2

REPORT INFORMATION
  Report Type: Spontaneous
  Country: US (occurrence: None)
  Receive Date: 20240620
  Receipt Date: 20240620
  Transmission Date: 20240716
  Serious: No
  Sender: FDA-Public Use
  Company Number: None

PATIENT
  Age: 69 Year
  Sex: Female
  Weight: 81.9 kg

DRUGS (6)
  1. EYLEA HD [Suspect]
     Active Substance: AFLIBERCEPT
     Indication: Macular degeneration
     Dates: start: 20240226
  2. VALSARTAN [Concomitant]
     Active Substance: VALSARTAN
  3. CARVEDILOL [Concomitant]
     Active Substance: CARVEDILOL
  4. POTASSIUM [Concomitant]
     Active Substance: POTASSIUM
  5. HYDROCHLOROTHIAZIDE\TRIAMTERENE [Concomitant]
     Active Substance: HYDROCHLOROTHIAZIDE\TRIAMTERENE
  6. AMLODIPINE [Concomitant]
     Active Substance: AMLODIPINE BESYLATE

REACTIONS (2)
  - Hypertension [None]
  - White coat hypertension [None]
